FAERS Safety Report 8184187-3 (Version None)
Quarter: 2012Q1

REPORT INFORMATION
  Report Type: 
  Country: None (occurrence: None)
  Receive Date: 20120305
  Receipt Date: 20120227
  Transmission Date: 20120608
  Serious: Yes (Other)
  Sender: FDA-Public Use
  Company Number: US-UCBSA-051165

PATIENT
  Sex: Female

DRUGS (2)
  1. CIMZIA [Suspect]
     Route: 058
     Dates: start: 20090601
  2. CIMZIA [Suspect]
     Indication: CROHN'S DISEASE
     Route: 058
     Dates: start: 20110101, end: 20120210

REACTIONS (6)
  - ANXIETY [None]
  - CONVULSION [None]
  - HYPERTENSION [None]
  - INAPPROPRIATE SCHEDULE OF DRUG ADMINISTRATION [None]
  - SUBCUTANEOUS ABSCESS [None]
  - DRUG EFFECT DECREASED [None]
